FAERS Safety Report 7547240-0 (Version None)
Quarter: 2011Q2

REPORT INFORMATION
  Report Type: 
  Country: None (occurrence: None)
  Receive Date: 20110614
  Receipt Date: 20040913
  Transmission Date: 20111010
  Serious: Yes (Death, Life-Threatening, Hospitalization)
  Sender: FDA-Public Use
  Company Number: PHFR2004GB02563

PATIENT
  Sex: Female

DRUGS (9)
  1. TEMAZEPAM [Concomitant]
     Dosage: 40MG/NOCTE
     Route: 065
  2. CITALOPRAM HYDROBROMIDE [Concomitant]
     Dosage: 10MG/DAY
     Route: 065
  3. CLOZAPINE [Suspect]
     Indication: SCHIZOPHRENIA
     Dosage: 350 MG/DAY
     Route: 048
     Dates: start: 20000801
  4. HYOSCINE [Concomitant]
     Dosage: 300 UG, QD
     Route: 065
  5. ASPIRIN [Concomitant]
  6. ALFACALCIDOL [Concomitant]
     Dosage: 0.2UG/DAY
  7. LACTULOSE [Concomitant]
     Dosage: 5 ML, PRN
     Route: 048
  8. RENAGEL [Concomitant]
     Dosage: 800 MG, PRN
     Route: 065
  9. SENNA-MINT WAF [Concomitant]
     Dosage: 7.5MG 1-2 NOCTE
     Route: 065

REACTIONS (5)
  - MYOCARDIAL ISCHAEMIA [None]
  - RENAL FAILURE CHRONIC [None]
  - INTESTINAL ISCHAEMIA [None]
  - TIBIA FRACTURE [None]
  - FIBULA FRACTURE [None]
